FAERS Safety Report 11471189 (Version 2)
Quarter: 2015Q3

REPORT INFORMATION
  Report Type: Spontaneous
  Country: US (occurrence: US)
  Receive Date: 20150903
  Receipt Date: 20150903
  Transmission Date: 20151125
  Serious: No
  Sender: FDA-Public Use
  Company Number: US-ELI_LILLY_AND_COMPANY-US201201007571

PATIENT
  Age: 49 Year
  Sex: Female

DRUGS (12)
  1. COMBIVENT [Concomitant]
     Active Substance: ALBUTEROL SULFATE\IPRATROPIUM BROMIDE
     Indication: ASTHMA
  2. ONDANSETRON [Concomitant]
     Active Substance: ONDANSETRON
  3. FAMOTIDINE. [Concomitant]
     Active Substance: FAMOTIDINE
  4. SINGULAIR [Concomitant]
     Active Substance: MONTELUKAST SODIUM
  5. SYMBICORT [Concomitant]
     Active Substance: BUDESONIDE\FORMOTEROL FUMARATE DIHYDRATE
  6. ALBUTEROL. [Concomitant]
     Active Substance: ALBUTEROL
  7. HYDROCODONE BITARTRATE AND ACETAMINOPHEN [Concomitant]
     Active Substance: ACETAMINOPHEN\HYDROCODONE BITARTRATE
  8. CYMBALTA [Suspect]
     Active Substance: DULOXETINE HYDROCHLORIDE
     Indication: FIBROMYALGIA
     Dosage: 30 MG, QD
  9. CHEMOTHERAPEUTICS [Concomitant]
     Active Substance: UNSPECIFIED INGREDIENT
     Indication: LEUKAEMIA
  10. TASIGNA [Concomitant]
     Active Substance: NILOTINIB
  11. PROMETHAZINE [Concomitant]
     Active Substance: PROMETHAZINE\PROMETHAZINE HYDROCHLORIDE
  12. XANAX [Concomitant]
     Active Substance: ALPRAZOLAM

REACTIONS (19)
  - Dysphonia [Unknown]
  - Insomnia [Unknown]
  - Muscle spasms [Unknown]
  - Ear discomfort [Unknown]
  - Tongue dry [Unknown]
  - Arthralgia [Unknown]
  - Diarrhoea [Unknown]
  - Vomiting [Unknown]
  - Anxiety [Unknown]
  - Dehydration [Unknown]
  - Drug ineffective [Unknown]
  - Sinusitis [Unknown]
  - Vulvovaginal mycotic infection [Unknown]
  - Bone pain [Unknown]
  - Oral fungal infection [Unknown]
  - Dizziness [Unknown]
  - Nausea [Unknown]
  - Asthma [Unknown]
  - Sinus congestion [Unknown]

NARRATIVE: CASE EVENT DATE: 201111
